FAERS Safety Report 9571008 (Version 2)
Quarter: 2013Q4

REPORT INFORMATION
  Report Type: Spontaneous
  Country: CA (occurrence: CA)
  Receive Date: 20131001
  Receipt Date: 20131126
  Transmission Date: 20140711
  Serious: Yes (Other)
  Sender: FDA-Public Use
  Company Number: CA-SHIRE-ALL1-2013-06622

PATIENT
  Age: 9 Year
  Sex: Male
  Weight: 45.35 kg

DRUGS (1)
  1. VYVANSE [Suspect]
     Indication: ATTENTION DEFICIT/HYPERACTIVITY DISORDER
     Dosage: 30 MG, 1X/DAY:QD
     Route: 048
     Dates: start: 20110906, end: 20120126

REACTIONS (5)
  - Self-injurious ideation [Recovered/Resolved]
  - Depressive symptom [Recovered/Resolved]
  - Nightmare [Recovered/Resolved]
  - Mood swings [Recovered/Resolved]
  - Irritability [Recovered/Resolved]
